FAERS Safety Report 4745012-3 (Version None)
Quarter: 2005Q3

REPORT INFORMATION
  Report Type: 
  Country: None (occurrence: None)
  Receive Date: 20050811
  Receipt Date: 20050802
  Transmission Date: 20060218
  Serious: Yes (Hospitalization)
  Sender: FDA-Public Use
  Company Number: DEWYE820008JUL05

PATIENT
  Age: 48 Year
  Sex: Female

DRUGS (1)
  1. VENLAFAXINE HCL [Suspect]
     Dosage: 70 CAPSULES A 75MG AND 40 CAPSULES A 150MG (TOTAL OVERDOSE AMOUNT 1.125 G) ORAL
     Route: 048
     Dates: start: 20050708, end: 20050708

REACTIONS (8)
  - AMNESIA [None]
  - FALL [None]
  - FRACTURE [None]
  - GRAND MAL CONVULSION [None]
  - INTENTIONAL MISUSE [None]
  - OVERDOSE [None]
  - SOMNOLENCE [None]
  - TACHYCARDIA [None]
